FAERS Safety Report 24954826 (Version 3)
Quarter: 2025Q1

REPORT INFORMATION
  Report Type: Spontaneous
  Country: CA (occurrence: CA)
  Receive Date: 20250211
  Receipt Date: 20250324
  Transmission Date: 20250409
  Serious: Yes (Death, Hospitalization, Other)
  Sender: KARYOPHARM THERAPEUTICS
  Company Number: CA-KARYOPHARM-2025KPT000139

PATIENT

DRUGS (3)
  1. XPOVIO [Suspect]
     Active Substance: SELINEXOR
     Indication: Plasma cell myeloma
     Route: 048
     Dates: start: 20241213, end: 202502
  2. DEXAMETHASONE [Concomitant]
     Active Substance: DEXAMETHASONE
  3. BORTEZOMIB [Concomitant]
     Active Substance: BORTEZOMIB

REACTIONS (3)
  - Death [Fatal]
  - COVID-19 [Unknown]
  - Pneumonia [Unknown]
